FAERS Safety Report 21098443 (Version 1)
Quarter: 2022Q3

REPORT INFORMATION
  Report Type: Spontaneous
  Country: NP (occurrence: NP)
  Receive Date: 20220719
  Receipt Date: 20220719
  Transmission Date: 20221026
  Serious: Yes (Other)
  Sender: FDA-Public Use
  Company Number: NP-SUN PHARMACEUTICAL INDUSTRIES LTD-2022RR-345030

PATIENT
  Age: 27 Year
  Sex: Female

DRUGS (9)
  1. CISPLATIN [Suspect]
     Active Substance: CISPLATIN
     Indication: Teratoma
     Dosage: UNK, 3 CYCLES
     Route: 065
  2. PACLITAXEL [Suspect]
     Active Substance: PACLITAXEL
     Indication: Teratoma
     Dosage: UNK, 2 CYCLES
     Route: 065
  3. GEMCITABINE [Suspect]
     Active Substance: GEMCITABINE
     Indication: Teratoma
     Dosage: UNK, 3 CYCLES
     Route: 065
  4. CARBOPLATIN [Suspect]
     Active Substance: CARBOPLATIN
     Indication: Teratoma
     Dosage: UNK, 3 CYCLES
     Route: 065
  5. VINCRISTINE [Suspect]
     Active Substance: VINCRISTINE
     Indication: Teratoma
     Dosage: UNK
     Route: 065
  6. DACTINOMYCIN [Suspect]
     Active Substance: DACTINOMYCIN
     Indication: Teratoma
     Dosage: UNK
     Route: 065
  7. IFOSFAMIDE [Suspect]
     Active Substance: IFOSFAMIDE
     Indication: Teratoma
     Dosage: UNK, 2 CYCLES
     Route: 065
  8. CYCLOPHOSPHAMIDE [Suspect]
     Active Substance: CYCLOPHOSPHAMIDE
     Indication: Teratoma
     Dosage: UNK
     Route: 065
  9. ETOPOSIDE [Suspect]
     Active Substance: ETOPOSIDE
     Indication: Teratoma
     Dosage: UNK, 3 CYCLES
     Route: 065

REACTIONS (1)
  - Disease progression [Unknown]
